FAERS Safety Report 4408237-2 (Version None)
Quarter: 2004Q3

REPORT INFORMATION
  Report Type: 
  Country: None (occurrence: None)
  Receive Date: 20040726
  Receipt Date: 20040726
  Transmission Date: 20050211
  Serious: Yes (Other)
  Sender: FDA-Public Use
  Company Number: None

PATIENT
  Sex: Female
  Weight: 56.6996 kg

DRUGS (2)
  1. ZITHROMAX [Suspect]
     Indication: OTITIS MEDIA
     Dosage: 500MG DAY 1  250MGX4DA  ORAL
     Route: 048
     Dates: start: 20040708, end: 20040711
  2. PREDNISONE [Suspect]
     Indication: SINUSITIS
     Dosage: 6PILLS DAY 1  6-4-2.5-1  ORAL
     Route: 048
     Dates: start: 20040708, end: 20040712

REACTIONS (13)
  - DYSPNOEA [None]
  - FATIGUE [None]
  - HYPOAESTHESIA ORAL [None]
  - INFECTION [None]
  - INSOMNIA [None]
  - MUSCULAR WEAKNESS [None]
  - MYALGIA [None]
  - PALPITATIONS [None]
  - PANIC ATTACK [None]
  - PARAESTHESIA ORAL [None]
  - SENSATION OF FOREIGN BODY [None]
  - TACHYCARDIA [None]
  - TINNITUS [None]
